FAERS Safety Report 5734155-3 (Version None)
Quarter: 2008Q2

REPORT INFORMATION
  Report Type: 
  Country: None (occurrence: None)
  Receive Date: 20080509
  Receipt Date: 20080430
  Transmission Date: 20081010
  Serious: Yes (Congenital Anomaly, Other)
  Sender: FDA-Public Use
  Company Number: GB-ABBOTT-08P-167-0449806-00

PATIENT
  Sex: Female
  Weight: 4.54 kg

DRUGS (1)
  1. VALPROIC ACID [Suspect]
     Indication: DRUG EXPOSURE DURING PREGNANCY
     Route: 064

REACTIONS (15)
  - ABNORMAL BEHAVIOUR [None]
  - CONGENITAL HAIR DISORDER [None]
  - CONGENITAL NOSE MALFORMATION [None]
  - DACRYOSTENOSIS CONGENITAL [None]
  - DRUG EXPOSURE DURING PREGNANCY [None]
  - DYSMORPHISM [None]
  - EAR MALFORMATION [None]
  - FOETAL ANTICONVULSANT SYNDROME [None]
  - FOETAL ARRHYTHMIA [None]
  - FOETAL DISTRESS SYNDROME [None]
  - HEMIPARESIS [None]
  - HYPERTELORISM OF ORBIT [None]
  - LIP DISORDER [None]
  - MYOPIA [None]
  - PARTIAL SEIZURES [None]
